FAERS Safety Report 9731386 (Version 2)
Quarter: 2013Q4

REPORT INFORMATION
  Report Type: Spontaneous
  Country: DE (occurrence: DE)
  Receive Date: 20131203
  Receipt Date: 20131226
  Transmission Date: 20140711
  Serious: Yes (Other)
  Sender: FDA-Public Use
  Company Number: DE-PFIZER INC-2013343734

PATIENT
  Sex: Female

DRUGS (2)
  1. GABAPENTIN [Suspect]
     Indication: PAIN
     Dosage: 2400 MG, DAILY
     Dates: start: 2013
  2. LYRICA [Suspect]
     Dosage: UNK

REACTIONS (3)
  - Corneal disorder [Unknown]
  - Ophthalmic herpes zoster [Unknown]
  - Balance disorder [Unknown]
